FAERS Safety Report 5535017-7 (Version None)
Quarter: 2007Q4

REPORT INFORMATION
  Report Type: 
  Country: None (occurrence: None)
  Receive Date: 20071205
  Receipt Date: 20071130
  Transmission Date: 20080405
  Serious: Yes (Disabling)
  Sender: FDA-Public Use
  Company Number: GB-MERCK-0709GBR00107

PATIENT
  Age: 87 Year
  Sex: Male

DRUGS (5)
  1. FOSAMAX [Suspect]
     Route: 048
     Dates: start: 20070711, end: 20070829
  2. CALCIUM CARBONATE AND CHOLECALCIFEROL [Concomitant]
     Route: 048
     Dates: start: 20030101
  3. ASPIRIN [Concomitant]
     Route: 048
     Dates: start: 19960101
  4. PREDNISOLONE [Concomitant]
     Route: 048
     Dates: start: 20040101
  5. SIMVASTATIN [Concomitant]
     Route: 065

REACTIONS (1)
  - INCREASED TENDENCY TO BRUISE [None]
